FAERS Safety Report 5831906-4 (Version None)
Quarter: 2008Q3

REPORT INFORMATION
  Report Type: 
  Country: None (occurrence: None)
  Receive Date: 20080729
  Receipt Date: 20080715
  Transmission Date: 20090109
  Serious: Yes (Other)
  Sender: FDA-Public Use
  Company Number: IDA-00109

PATIENT
  Age: 31 Year
  Sex: Female

DRUGS (2)
  1. INDERAL [Suspect]
     Indication: TACHYCARDIA
     Dosage: 20 MG TID PO, FORMULATION: TABL
     Route: 048
     Dates: start: 20080615, end: 20080623
  2. METHIMAZOLE [Concomitant]

REACTIONS (1)
  - OEDEMA PERIPHERAL [None]
